FAERS Safety Report 24636035 (Version 1)
Quarter: 2024Q4

REPORT INFORMATION
  Report Type: Spontaneous
  Country: RU (occurrence: RU)
  Receive Date: 20241119
  Receipt Date: 20241119
  Transmission Date: 20250114
  Serious: Yes (Other)
  Sender: ROCHE
  Company Number: RU-ROCHE-10000135331

PATIENT
  Age: 2 Year

DRUGS (2)
  1. TOCILIZUMAB [Suspect]
     Active Substance: TOCILIZUMAB
     Indication: Acute lymphocytic leukaemia
     Dosage: 8 MG/KG
     Route: 042
  2. ANAKINRA [Concomitant]
     Active Substance: ANAKINRA

REACTIONS (3)
  - Weight increased [Unknown]
  - Pyrexia [Recovered/Resolved]
  - Off label use [Unknown]
